FAERS Safety Report 6672872-1 (Version None)
Quarter: 2010Q2

REPORT INFORMATION
  Report Type: 
  Country: None (occurrence: None)
  Receive Date: 20100408
  Receipt Date: 20100329
  Transmission Date: 20101027
  Serious: Yes (Other)
  Sender: FDA-Public Use
  Company Number: PHHY2010DE12031

PATIENT
  Sex: Female
  Weight: 67 kg

DRUGS (4)
  1. ACLASTA [Suspect]
     Dosage: 5 MG
     Route: 042
     Dates: start: 20100201, end: 20100201
  2. GYNOKADIN GEL [Concomitant]
     Indication: MENOPAUSE
     Dosage: UNK
     Dates: start: 20090101
  3. LEVOTHYROXINE SODIUM [Concomitant]
     Dosage: UNK
     Route: 048
     Dates: start: 19750101
  4. DELIX [Concomitant]
     Indication: HYPERTENSION
     Dosage: UNK
     Route: 048
     Dates: start: 19950101

REACTIONS (11)
  - ASTHENIA [None]
  - CIRCULATORY COLLAPSE [None]
  - CONJUNCTIVITIS [None]
  - DECREASED APPETITE [None]
  - HEADACHE [None]
  - INFLUENZA LIKE ILLNESS [None]
  - IRIDOCYCLITIS [None]
  - LACRIMATION INCREASED [None]
  - NAUSEA [None]
  - PAIN IN EXTREMITY [None]
  - PYREXIA [None]
